FAERS Safety Report 6744413-1 (Version None)
Quarter: 2010Q2

REPORT INFORMATION
  Report Type: 
  Country: None (occurrence: None)
  Receive Date: 20100527
  Receipt Date: 20100518
  Transmission Date: 20101027
  Serious: Yes (Hospitalization, Other)
  Sender: FDA-Public Use
  Company Number: US-PFIZER INC-2010062873

PATIENT
  Sex: Female
  Weight: 88.889 kg

DRUGS (6)
  1. LIPITOR [Suspect]
     Indication: BLOOD TRIGLYCERIDES INCREASED
     Dosage: 40 MG, 1X/DAY
     Route: 048
     Dates: start: 20091101, end: 20100501
  2. NOVOLOG [Concomitant]
     Indication: DIABETES MELLITUS
     Dates: end: 20100401
  3. PLAVIX [Concomitant]
     Dosage: UNK
  4. LEXAPRO [Concomitant]
     Dosage: UNK
  5. LISINOPRIL [Concomitant]
     Dosage: UNK
  6. ATIVAN [Concomitant]
     Dosage: UNK

REACTIONS (20)
  - ANGER [None]
  - ASTHENIA [None]
  - BLINDNESS [None]
  - BLOOD GLUCOSE DECREASED [None]
  - BLOOD GLUCOSE INCREASED [None]
  - CONTUSION [None]
  - DECREASED APPETITE [None]
  - FALL [None]
  - GLYCOSYLATED HAEMOGLOBIN INCREASED [None]
  - HEAD INJURY [None]
  - HEADACHE [None]
  - HYPOKINESIA [None]
  - INFLAMMATION [None]
  - MEMORY IMPAIRMENT [None]
  - NAUSEA [None]
  - NERVE INJURY [None]
  - PAIN [None]
  - SKIN LACERATION [None]
  - TREMOR [None]
  - VOMITING [None]
